FAERS Safety Report 8856709 (Version 2)
Quarter: 2014Q2

REPORT INFORMATION
  Report Type: Spontaneous
  Country: GB (occurrence: None)
  Receive Date: 20121019
  Receipt Date: 20140623
  Transmission Date: 20141212
  Serious: Yes (Life-Threatening)
  Sender: FDA-Public Use
  Company Number: AUR-APL-2012-04425

PATIENT
  Age: 73 Year
  Sex: Male
  Weight: 88.5 kg

DRUGS (8)
  1. TRIMETHOPRIM [Suspect]
     Indication: INFECTION
     Route: 048
     Dates: start: 20120830, end: 20120925
  2. LISINOPRIL [Suspect]
  3. ATENOLOL [Suspect]
     Indication: PRODUCT USED FOR UNKNOWN INDICATION
  4. ASPIRIN COATED (ACETYLSALICYLIC ACID) [Concomitant]
  5. GLYCERYL TRINITRATE (GLYCERYL TRINITRATE) [Concomitant]
  6. LEVOTHYROXINE (LEVOTHYROXINE) [Concomitant]
  7. OMEPRAZOLE (OMEPRAZOLE) [Concomitant]
  8. SIMVASTATIN (SIMVASTATIN) [Concomitant]

REACTIONS (5)
  - Renal failure acute [None]
  - Bradycardia [None]
  - Cardiac arrest [None]
  - Hyperkalaemia [None]
  - Presyncope [None]
